FAERS Safety Report 21729030 (Version 1)
Quarter: 2022Q4

REPORT INFORMATION
  Report Type: Spontaneous
  Country: US (occurrence: US)
  Receive Date: 20221214
  Receipt Date: 20221214
  Transmission Date: 20230112
  Serious: Yes (Hospitalization, Other)
  Sender: FDA-Public Use
  Company Number: US-SA-2022SA501927

PATIENT
  Age: 66 Year
  Sex: Male

DRUGS (3)
  1. ANTI-THYMOCYTE GLOBULIN (RABBIT) NOS [Suspect]
     Active Substance: LAPINE T-LYMPHOCYTE IMMUNE GLOBULIN
     Indication: Immunosuppressant drug therapy
     Dosage: UNK
  2. PREDNISONE [Suspect]
     Active Substance: PREDNISONE
     Indication: Immunosuppressant drug therapy
     Dosage: LOW-DOSE
  3. TACROLIMUS [Suspect]
     Active Substance: TACROLIMUS
     Indication: Immunosuppressant drug therapy
     Dosage: UNK

REACTIONS (6)
  - Acute respiratory failure [Recovering/Resolving]
  - Tuberculosis [Recovering/Resolving]
  - Cryptococcosis [Recovering/Resolving]
  - Opportunistic infection [Recovering/Resolving]
  - Cytomegalovirus viraemia [Recovering/Resolving]
  - Cytomegalovirus hepatitis [Recovering/Resolving]
